FAERS Safety Report 6896927-1 (Version None)
Quarter: 2010Q3

REPORT INFORMATION
  Report Type: 
  Country: None (occurrence: None)
  Receive Date: 20100729
  Receipt Date: 20100722
  Transmission Date: 20110219
  Serious: Yes (Hospitalization)
  Sender: FDA-Public Use
  Company Number: URSO-2010-091

PATIENT
  Age: 80 Year
  Sex: Female

DRUGS (7)
  1. DELURSAN (URSODEOXYCHLOIC ACID) 250MG TABLET [Suspect]
     Indication: PRODUCT USED FOR UNKNOWN INDICATION
     Dosage: 250 MG TID ORAL
     Route: 048
     Dates: start: 20040101
  2. MYSOLINE [Suspect]
     Indication: PRODUCT USED FOR UNKNOWN INDICATION
     Dosage: 250MG BID ORAL
     Route: 048
     Dates: start: 20040101
  3. HEPT A MYL (HEPTAMINOL) TABLET [Suspect]
     Indication: PRODUCT USED FOR UNKNOWN INDICATION
     Dosage: 187.8MG QID ORAL
     Route: 048
     Dates: start: 20040101
  4. STRESAM (ETIFOXINE HYDROCHLORIDE) [Suspect]
     Indication: PRODUCT USED FOR UNKNOWN INDICATION
     Dates: start: 20040101
  5. VASTAREL (TRIMETAZIDINE) TABLET [Suspect]
     Indication: PRODUCT USED FOR UNKNOWN INDICATION
     Dosage: 35MG BID ORAL
     Route: 048
     Dates: start: 20040101
  6. CALCIUM CARBONATE [Concomitant]
  7. FOSAVANCE (ALENDRONIC ACID, COLECALCIFEROL) [Concomitant]

REACTIONS (1)
  - TOXIC SKIN ERUPTION [None]
